FAERS Safety Report 7260884-9 (Version None)
Quarter: 2011Q1

REPORT INFORMATION
  Report Type: 
  Country: None (occurrence: None)
  Receive Date: 20110130
  Receipt Date: 20101112
  Transmission Date: 20110831
  Serious: No
  Sender: FDA-Public Use
  Company Number: US-ABBOTT-10P-163-0685114-00

PATIENT
  Sex: Female

DRUGS (3)
  1. METFORMIN [Concomitant]
     Indication: DIABETES MELLITUS
  2. TURPUMA [Concomitant]
     Indication: HYPERTENSION
  3. HUMIRA [Suspect]
     Indication: PSORIATIC ARTHROPATHY
     Dates: start: 20101106

REACTIONS (1)
  - HEADACHE [None]
